FAERS Safety Report 5466993-9 (Version None)
Quarter: 2007Q3

REPORT INFORMATION
  Report Type: 
  Country: None (occurrence: None)
  Receive Date: 20070924
  Receipt Date: 20070924
  Transmission Date: 20080115
  Serious: Yes (Other)
  Sender: FDA-Public Use
  Company Number: None

PATIENT
  Age: 39 Year
  Sex: Female
  Weight: 65.7716 kg

DRUGS (1)
  1. BUDEPRION XL 300ML [Suspect]
     Indication: DEPRESSION
     Dosage: 300 MG 1 DAY
     Dates: start: 20070702, end: 20070919

REACTIONS (1)
  - PHARMACEUTICAL PRODUCT COMPLAINT [None]
